FAERS Safety Report 7202010-8 (Version None)
Quarter: 2010Q4

REPORT INFORMATION
  Report Type: 
  Country: None (occurrence: None)
  Receive Date: 20101216
  Receipt Date: 20101208
  Transmission Date: 20110411
  Serious: Yes (Other)
  Sender: FDA-Public Use
  Company Number: 2010SP063853

PATIENT
  Age: 20 Year
  Sex: Female
  Weight: 65.7716 kg

DRUGS (1)
  1. IMPLANON [Suspect]
     Indication: CONTRACEPTION
     Dosage: ; SBDE
     Route: 059
     Dates: start: 20100205, end: 20101122

REACTIONS (2)
  - CERVIX CARCINOMA [None]
  - MENSTRUATION DELAYED [None]
